FAERS Safety Report 10794805 (Version 1)
Quarter: 2015Q1

REPORT INFORMATION
  Report Type: Spontaneous
  Country: US (occurrence: US)
  Receive Date: 20150213
  Receipt Date: 20150213
  Transmission Date: 20150721
  Serious: No
  Sender: FDA-Public Use
  Company Number: US-GLAXOSMITHKLINE-US2015005425

PATIENT
  Age: 74 Year
  Sex: Male

DRUGS (2)
  1. NICORETTE MINT [Suspect]
     Active Substance: NICOTINE
  2. NICORETTE MINT [Suspect]
     Active Substance: NICOTINE
     Indication: SMOKING CESSATION THERAPY
     Dosage: 2 MG, UNK
     Dates: start: 201407

REACTIONS (1)
  - Nicotine dependence [Not Recovered/Not Resolved]
